FAERS Safety Report 20558879 (Version 1)
Quarter: 2022Q1

REPORT INFORMATION
  Report Type: Spontaneous
  Country: AU (occurrence: AU)
  Receive Date: 20220307
  Receipt Date: 20220307
  Transmission Date: 20220423
  Serious: Yes (Death, Other)
  Sender: FDA-Public Use
  Company Number: AU-Accord-256125

PATIENT
  Age: 88 Year
  Sex: Female

DRUGS (3)
  1. CLONAZEPAM [Suspect]
     Active Substance: CLONAZEPAM
     Dosage: AT 8.30AM DR E GAVE HER A DECENT 2.5MG DOSE
     Dates: start: 20160304
  2. MIDAZOLAM [Suspect]
     Active Substance: MIDAZOLAM
     Route: 058
     Dates: start: 20160304
  3. MORPHINE [Suspect]
     Active Substance: MORPHINE
     Route: 058
     Dates: start: 20160304

REACTIONS (4)
  - Cheyne-Stokes respiration [Fatal]
  - Cerebrovascular accident [Fatal]
  - Tachycardia [Fatal]
  - Wrong patient received product [Fatal]

NARRATIVE: CASE EVENT DATE: 20160304
